FAERS Safety Report 9549523 (Version 2)
Quarter: 2013Q3

REPORT INFORMATION
  Report Type: Spontaneous
  Country: GB (occurrence: None)
  Receive Date: 20130919
  Receipt Date: 20130924
  Transmission Date: 20140515
  Serious: Yes (Other)
  Sender: FDA-Public Use
  Company Number: AUR-APL-2013-07651

PATIENT
  Age: 20 Week
  Sex: 0

DRUGS (1)
  1. ONDANSETRON [Suspect]
     Dosage: 12MG (4MG, 3 IN 1)
     Route: 064
     Dates: start: 20130301, end: 20130518

REACTIONS (3)
  - Intestinal obstruction [None]
  - Maternal drugs affecting foetus [None]
  - Foetal disorder [None]
